FAERS Safety Report 25640132 (Version 2)
Quarter: 2025Q3

REPORT INFORMATION
  Report Type: Spontaneous
  Country: US (occurrence: US)
  Receive Date: 20250804
  Receipt Date: 20250929
  Transmission Date: 20251021
  Serious: Yes (Other)
  Sender: PFIZER
  Company Number: US-PFIZER INC-PV202400059746

PATIENT
  Age: 72 Year
  Sex: Female
  Weight: 60.8 kg

DRUGS (4)
  1. IBRANCE [Suspect]
     Active Substance: PALBOCICLIB
     Indication: Metastases to lung
     Route: 048
     Dates: start: 20240518
  2. IBRANCE [Suspect]
     Active Substance: PALBOCICLIB
     Indication: Breast cancer female
     Route: 048
     Dates: start: 20240617, end: 20250728
  3. IBRANCE [Suspect]
     Active Substance: PALBOCICLIB
     Indication: Hormone receptor positive breast cancer
  4. LETROZOLE [Suspect]
     Active Substance: LETROZOLE
     Dosage: UNK UNK, DAILY

REACTIONS (2)
  - Pancytopenia [Unknown]
  - Blood pressure abnormal [Unknown]
